FAERS Safety Report 19434125 (Version 1)
Quarter: 2021Q2

REPORT INFORMATION
  Report Type: Spontaneous
  Country: GB (occurrence: GB)
  Receive Date: 20210618
  Receipt Date: 20210618
  Transmission Date: 20210717
  Serious: Yes (Life-Threatening, Other)
  Sender: FDA-Public Use
  Company Number: GB-ELI_LILLY_AND_COMPANY-GB202106006420

PATIENT
  Age: 34 Year
  Sex: Male

DRUGS (33)
  1. DULOXETINE HYDROCHLORIDE. [Suspect]
     Active Substance: DULOXETINE HYDROCHLORIDE
     Indication: DEPRESSED MOOD
     Dosage: UNK UNK, UNKNOWN
     Route: 065
     Dates: start: 20210329
  2. AMITRIPTYLINE [Concomitant]
     Active Substance: AMITRIPTYLINE
     Dosage: 3 DOSAGE FORM, DAILY
     Route: 065
     Dates: start: 20210426
  3. AMITRIPTYLINE [Concomitant]
     Active Substance: AMITRIPTYLINE
     Dosage: 3 DOSAGE FORM
     Route: 065
     Dates: start: 20210315
  4. NAPROXEN. [Concomitant]
     Active Substance: NAPROXEN
     Dosage: 1 DOSAGE FORM, DAILY
     Route: 065
     Dates: start: 20210602
  5. NAPROXEN. [Concomitant]
     Active Substance: NAPROXEN
     Dosage: 1 DOSAGE FORM, DAILY
     Route: 065
     Dates: start: 20210426
  6. TRAZODONE [Concomitant]
     Active Substance: TRAZODONE HYDROCHLORIDE
     Dosage: 1 DOSAGE FORM, EACH EVENING
     Route: 065
     Dates: start: 20210602
  7. PREGABALIN. [Concomitant]
     Active Substance: PREGABALIN
     Dosage: 1 DOSAGE FORM, TID
     Route: 065
     Dates: start: 20210329
  8. PREGABALIN. [Concomitant]
     Active Substance: PREGABALIN
     Dosage: 1 DOSAGE FORM, TID
     Route: 065
     Dates: start: 20210602
  9. AMITRIPTYLINE [Concomitant]
     Active Substance: AMITRIPTYLINE
     Dosage: 3 DOSAGE FORM
     Route: 065
     Dates: start: 20210506
  10. NAPROXEN. [Concomitant]
     Active Substance: NAPROXEN
     Dosage: 1 DOSAGE FORM, DAILY
     Route: 065
     Dates: start: 20210329
  11. PREGABALIN. [Concomitant]
     Active Substance: PREGABALIN
     Dosage: 1 DOSAGE FORM, TID
     Route: 065
     Dates: start: 20210413
  12. PREGABALIN. [Concomitant]
     Active Substance: PREGABALIN
     Dosage: 1 DOSAGE FORM, TID
     Route: 065
     Dates: start: 20210520
  13. AMITRIPTYLINE [Concomitant]
     Active Substance: AMITRIPTYLINE
     Dosage: 3 DOSAGE FORM
     Route: 065
     Dates: start: 20210329
  14. DULOXETINE. [Concomitant]
     Active Substance: DULOXETINE
     Dosage: 1 DOSAGE FORM, DAILY
     Route: 065
     Dates: start: 20210426
  15. LANSOPRAZOLE. [Concomitant]
     Active Substance: LANSOPRAZOLE
     Dosage: 1 DOSAGE FORM, DAILY
     Route: 065
     Dates: start: 20210426
  16. LANSOPRAZOLE. [Concomitant]
     Active Substance: LANSOPRAZOLE
     Dosage: 1 DOSAGE FORM
     Route: 065
     Dates: start: 20210315
  17. NAPROXEN. [Concomitant]
     Active Substance: NAPROXEN
     Dosage: 1 DOSAGE FORM, DAILY
     Dates: start: 20210407
  18. AMITRIPTYLINE [Concomitant]
     Active Substance: AMITRIPTYLINE
     Dosage: 3 DOSAGE FORM
     Route: 065
     Dates: start: 20210413
  19. AMITRIPTYLINE [Concomitant]
     Active Substance: AMITRIPTYLINE
     Dosage: 3 DOSAGE FORM
     Route: 065
     Dates: start: 20210602
  20. DULOXETINE. [Concomitant]
     Active Substance: DULOXETINE
     Dosage: 1 DOSAGE FORM, DAILY
     Route: 065
     Dates: start: 20210506
  21. NAPROXEN. [Concomitant]
     Active Substance: NAPROXEN
     Dosage: 1 DOSAGE FORM, DAILY
     Route: 065
     Dates: start: 20210506
  22. PREGABALIN. [Concomitant]
     Active Substance: PREGABALIN
     Dosage: 1 DOSAGE FORM, TID
     Route: 065
     Dates: start: 20210426
  23. PREGABALIN. [Concomitant]
     Active Substance: PREGABALIN
     Dosage: 1 DOSAGE FORM, TID
     Route: 065
     Dates: start: 20210506
  24. AMITRIPTYLINE [Concomitant]
     Active Substance: AMITRIPTYLINE
     Dosage: 3 DOSAGE FORM
     Route: 065
     Dates: start: 20210520
  25. LANSOPRAZOLE. [Concomitant]
     Active Substance: LANSOPRAZOLE
     Dosage: 1 DOSAGE FORM
     Route: 065
     Dates: start: 20210413
  26. LANSOPRAZOLE. [Concomitant]
     Active Substance: LANSOPRAZOLE
     Dosage: 1 DOSAGE FORM
     Route: 065
     Dates: start: 20210520
  27. NAPROXEN. [Concomitant]
     Active Substance: NAPROXEN
     Dosage: 1 DOSAGE FORM, DAILY
     Route: 065
     Dates: start: 20210520
  28. NAPROXEN. [Concomitant]
     Active Substance: NAPROXEN
     Dosage: 1 DOSAGE FORM, DAILY
     Route: 065
     Dates: start: 20210413
  29. DULOXETINE HYDROCHLORIDE. [Suspect]
     Active Substance: DULOXETINE HYDROCHLORIDE
     Indication: PAIN
  30. NAPROXEN. [Concomitant]
     Active Substance: NAPROXEN
     Dosage: 1 DOSAGE FORM, DAILY
     Route: 065
     Dates: start: 20210315
  31. PREGABALIN. [Concomitant]
     Active Substance: PREGABALIN
     Dosage: 1 DOSAGE FORM, TID
     Route: 065
     Dates: start: 20210315
  32. ZOPICLONE [Concomitant]
     Active Substance: ZOPICLONE
     Dosage: 1 DOSAGE FORM, EACH EVENING
     Route: 065
     Dates: start: 20210413
  33. ZOPICLONE [Concomitant]
     Active Substance: ZOPICLONE
     Dosage: 1 DOSAGE FORM, EACH EVENING
     Route: 065
     Dates: start: 20210426

REACTIONS (3)
  - Alanine aminotransferase increased [Recovered/Resolved]
  - Increased tendency to bruise [Recovered/Resolved]
  - Aspartate aminotransferase increased [Recovered/Resolved]

NARRATIVE: CASE EVENT DATE: 20210426
